FAERS Safety Report 9584189 (Version 1)
Quarter: 2013Q4

REPORT INFORMATION
  Report Type: Spontaneous
  Country: US (occurrence: US)
  Receive Date: 20131002
  Receipt Date: 20131002
  Transmission Date: 20140711
  Serious: No
  Sender: FDA-Public Use
  Company Number: US-AMGEN-USASP2013051972

PATIENT
  Age: 3 Year
  Sex: Female
  Weight: 12.7 kg

DRUGS (4)
  1. ENBREL [Suspect]
     Indication: PRODUCT USED FOR UNKNOWN INDICATION
     Dosage: 7 MG, QWK
     Route: 058
  2. TRIVISOL                           /00262101/ [Concomitant]
     Dosage: UNK
  3. NAPROSYN                           /00256201/ [Concomitant]
     Dosage: 125/5 ML, UNK
  4. TYLENOL                            /00020001/ [Concomitant]
     Dosage: 650 MG, 8 HR

REACTIONS (1)
  - Juvenile idiopathic arthritis [Unknown]
